FAERS Safety Report 12143888 (Version 1)
Quarter: 2016Q1

REPORT INFORMATION
  Report Type: Spontaneous
  Country: PL (occurrence: PL)
  Receive Date: 20160304
  Receipt Date: 20160304
  Transmission Date: 20160526
  Serious: Yes (Death, Other)
  Sender: FDA-Public Use
  Company Number: PL-ACCORD-038526

PATIENT
  Sex: Female

DRUGS (2)
  1. CARBOPLATIN. [Suspect]
     Active Substance: CARBOPLATIN
     Indication: OVARIAN CANCER
  2. PACLITAXEL/PACLITAXEL LIPOSOME [Suspect]
     Active Substance: PACLITAXEL
     Indication: OVARIAN CANCER

REACTIONS (6)
  - Maternal exposure during pregnancy [Unknown]
  - Disseminated intravascular coagulation [Fatal]
  - Hypoproteinaemia [Unknown]
  - Hypokalaemia [Unknown]
  - Hepatic failure [Unknown]
  - Abortion spontaneous [Unknown]
